FAERS Safety Report 5682557-6 (Version None)
Quarter: 2008Q1

REPORT INFORMATION
  Report Type: 
  Country: None (occurrence: None)
  Receive Date: 20080327
  Receipt Date: 20071212
  Transmission Date: 20080703
  Serious: Yes (Other)
  Sender: FDA-Public Use
  Company Number: US-BRISTOL-MYERS SQUIBB COMPANY-14012751

PATIENT
  Age: 60 Year
  Sex: Female

DRUGS (7)
  1. ORENCIA [Suspect]
     Route: 042
  2. PREDNISONE TAB [Concomitant]
  3. PREMARIN [Concomitant]
  4. LUNESTA [Concomitant]
  5. CELEBREX [Concomitant]
  6. ULTRAM [Concomitant]
  7. HYDROCHLOROTHIAZIDE [Concomitant]

REACTIONS (2)
  - PHARYNGEAL OEDEMA [None]
  - RASH [None]
